FAERS Safety Report 21790101 (Version 3)
Quarter: 2023Q1

REPORT INFORMATION
  Report Type: Spontaneous
  Country: FR (occurrence: FR)
  Receive Date: 20221228
  Receipt Date: 20230109
  Transmission Date: 20230417
  Serious: Yes (Life-Threatening, Hospitalization, Other)
  Sender: FDA-Public Use
  Company Number: None

PATIENT
  Age: 70 Year
  Sex: Female

DRUGS (15)
  1. DEXAMETHASONE [Suspect]
     Active Substance: DEXAMETHASONE
     Indication: General anaesthesia
     Dosage: 8 MILLIGRAM, 20 MG/5 ML
     Route: 042
     Dates: start: 20220329, end: 20220329
  2. CEFUROXIME [Suspect]
     Active Substance: CEFUROXIME
     Indication: Antibiotic prophylaxis
     Dosage: 1.5 GRAM, 1.5 GRAM
     Route: 042
     Dates: start: 20220329, end: 20220329
  3. SUFENTANIL [Suspect]
     Active Substance: SUFENTANIL
     Indication: General anaesthesia
     Dosage: 20 MG,1ST INJ 20?G2ND INJ 5?G 3RD INJ 5?G
     Route: 042
     Dates: start: 20220329, end: 20220329
  4. SUFENTANIL [Suspect]
     Active Substance: SUFENTANIL
     Dosage: 5 MICROGRAM,THIRD INJECTION 5 UG
     Route: 042
     Dates: start: 20220329, end: 20220329
  5. KETOPROFEN [Suspect]
     Active Substance: KETOPROFEN
     Indication: General anaesthesia
     Dosage: 100 MILLIGRAM, 100 MG/4 ML
     Route: 042
     Dates: start: 20220329, end: 20220329
  6. ATRACURIUM BESYLATE [Suspect]
     Active Substance: ATRACURIUM BESYLATE
     Indication: General anaesthesia
     Dosage: 30 MG,1ST INJECTION 30MG,2ND INJECTION 10MG
     Route: 042
     Dates: start: 20220329, end: 20220329
  7. ATRACURIUM BESYLATE [Suspect]
     Active Substance: ATRACURIUM BESYLATE
     Dosage: 10 MILLIGRAM, 10 MG (SECOND INJECTION)
     Route: 042
     Dates: start: 20220329, end: 20220329
  8. NEFOPAM HYDROCHLORIDE [Suspect]
     Active Substance: NEFOPAM HYDROCHLORIDE
     Indication: General anaesthesia
     Dosage: 20 MILLIGRAM, 20 MG/2 ML
     Route: 042
     Dates: start: 20220329, end: 20220329
  9. TRANEXAMIC ACID [Suspect]
     Active Substance: TRANEXAMIC ACID
     Indication: Haemorrhage prophylaxis
     Dosage: 1 GRAM, 0,5 G/5 ML I.V
     Route: 042
     Dates: start: 20220329, end: 20220329
  10. ROPIVACAINE [Suspect]
     Active Substance: ROPIVACAINE
     Indication: General anaesthesia
     Dosage: 120 MILLIGRAM
     Route: 042
     Dates: start: 20220329, end: 20220329
  11. KETAMINE [Suspect]
     Active Substance: KETAMINE
     Indication: General anaesthesia
     Dosage: 15 MILLIGRAM
     Route: 042
     Dates: start: 20220329, end: 20220329
  12. PROPOFOL LIPURO [Suspect]
     Active Substance: PROPOFOL
     Indication: General anaesthesia
     Dosage: 100 MILLIGRAM
     Route: 042
     Dates: start: 20220329, end: 20220329
  13. DROPERIDOL [Suspect]
     Active Substance: DROPERIDOL
     Indication: General anaesthesia
     Dosage: 1.25 MILLIGRAM, 2.5 MG/1 ML
     Route: 042
     Dates: start: 20220329, end: 20220329
  14. ATENOLOL [Concomitant]
     Active Substance: ATENOLOL
     Dosage: 1 DOSAGE FORM, 1 DF, IN MORNING
     Route: 065
  15. ACETAMINOPHEN [Concomitant]
     Active Substance: ACETAMINOPHEN
     Dosage: UNK
     Route: 065
     Dates: start: 20220329, end: 20220329

REACTIONS (1)
  - Anaphylactic reaction [Recovered/Resolved]

NARRATIVE: CASE EVENT DATE: 20220329
